FAERS Safety Report 8108820-7 (Version None)
Quarter: 2012Q1

REPORT INFORMATION
  Report Type: 
  Country: None (occurrence: None)
  Receive Date: 20120202
  Receipt Date: 20120120
  Transmission Date: 20120608
  Serious: Yes (Other)
  Sender: FDA-Public Use
  Company Number: DE-TEVA-319039GER

PATIENT
  Sex: Female

DRUGS (2)
  1. CLINDAMYCIN [Suspect]
     Indication: ARTHRITIS
     Dosage: 1800 MILLIGRAM;
     Route: 048
  2. ACETAMINOPHEN [Concomitant]
     Indication: PAIN
     Route: 048

REACTIONS (3)
  - HEPATITIS [None]
  - CHOLESTASIS [None]
  - JAUNDICE [None]
